FAERS Safety Report 4822739-6 (Version None)
Quarter: 2005Q4

REPORT INFORMATION
  Report Type: 
  Country: None (occurrence: None)
  Receive Date: 20051108
  Receipt Date: 20051005
  Transmission Date: 20060501
  Serious: Yes (Disabling)
  Sender: FDA-Public Use
  Company Number: 2005AP05260

PATIENT
  Age: 24479 Day
  Sex: Female
  Weight: 44 kg

DRUGS (7)
  1. OMEPRAL [Suspect]
     Indication: REFLUX OESOPHAGITIS
     Route: 048
  2. SOLANAX [Concomitant]
     Route: 048
  3. MARZULENE S [Concomitant]
     Route: 048
  4. LORAMET [Concomitant]
     Route: 048
  5. HALCION [Concomitant]
     Route: 048
  6. ALESION [Concomitant]
     Route: 048
  7. THEO-DUR [Concomitant]
     Route: 048

REACTIONS (1)
  - RETINAL VEIN OCCLUSION [None]
